FAERS Safety Report 10597486 (Version 1)
Quarter: 2014Q4

REPORT INFORMATION
  Report Type: Spontaneous
  Country: US (occurrence: None)
  Receive Date: 20141119
  Receipt Date: 20141119
  Transmission Date: 20150529
  Serious: Yes (Death, Hospitalization, Other)
  Sender: FDA-Public Use
  Company Number: UNT-2014-00067

PATIENT
  Age: 67 Year
  Sex: Male
  Weight: 78 kg

DRUGS (4)
  1. REMODULIN [Suspect]
     Active Substance: TREPROSTINIL
     Indication: PULMONARY ARTERIAL HYPERTENSION
     Dosage: CONTINUING, IV DRIP
     Route: 042
     Dates: start: 20140410
  2. ASPIRIN (ACETYLSALICYLIC ACID) [Concomitant]
     Active Substance: ASPIRIN
  3. COUMADIN [Suspect]
     Active Substance: WARFARIN SODIUM
     Indication: PRODUCT USED FOR UNKNOWN INDICATION
  4. REVATIO (SILDENAFIL CITRATE) [Concomitant]

REACTIONS (7)
  - Internal haemorrhage [None]
  - Myalgia [None]
  - Epistaxis [None]
  - Gastrointestinal haemorrhage [None]
  - Nausea [None]
  - Haemoptysis [None]
  - International normalised ratio increased [None]

NARRATIVE: CASE EVENT DATE: 20140509
